FAERS Safety Report 9866825 (Version 1)
Quarter: 2014Q1

REPORT INFORMATION
  Report Type: Spontaneous
  Country: US (occurrence: US)
  Receive Date: 20140204
  Receipt Date: 20140204
  Transmission Date: 20141002
  Serious: Yes (Other)
  Sender: FDA-Public Use
  Company Number: US-ROCHE-1338491

PATIENT
  Age: 26 Year
  Sex: Male
  Weight: 86.71 kg

DRUGS (2)
  1. TAMIFLU [Suspect]
     Indication: INFLUENZA
     Route: 048
     Dates: start: 20140120, end: 20140121
  2. ZOLPIDEM [Concomitant]
     Indication: INSOMNIA
     Dosage: Q HS PRN
     Route: 048
     Dates: start: 20140120, end: 20140121

REACTIONS (9)
  - Hallucination [Unknown]
  - Adverse drug reaction [Unknown]
  - Confusional state [Recovered/Resolved]
  - Dyskinesia [Recovered/Resolved]
  - Memory impairment [Recovered/Resolved]
  - Disorientation [Recovered/Resolved]
  - Pain [Unknown]
  - Pyrexia [Unknown]
  - Oropharyngeal pain [Unknown]
